FAERS Safety Report 6725351-7 (Version None)
Quarter: 2010Q2

REPORT INFORMATION
  Report Type: 
  Country: None (occurrence: None)
  Receive Date: 20100514
  Receipt Date: 20100507
  Transmission Date: 20101027
  Serious: Yes (Hospitalization, Other)
  Sender: FDA-Public Use
  Company Number: FR-BRISTOL-MYERS SQUIBB COMPANY-15101884

PATIENT
  Age: 53 Year
  Sex: Female

DRUGS (2)
  1. GLUCOPHAGE [Suspect]
     Indication: TYPE 2 DIABETES MELLITUS
     Dosage: 25JAN2010 DOUBLED THE DAILY DOSE;COATED TABLET.
     Route: 048
     Dates: start: 20091120, end: 20100126
  2. BYETTA [Suspect]
     Indication: TYPE 2 DIABETES MELLITUS
     Dosage: STRENGTH: 10MCG;FORM: SOLN FOR INJ; 25JAN2010 DOUBLED THE DAILY DOSE.
     Route: 058
     Dates: start: 20091120, end: 20100126

REACTIONS (3)
  - DEHYDRATION [None]
  - HYPERGLYCAEMIA [None]
  - VOMITING [None]
